FAERS Safety Report 14579275 (Version 2)
Quarter: 2018Q1

REPORT INFORMATION
  Report Type: Spontaneous
  Country: CH (occurrence: CH)
  Receive Date: 20180227
  Receipt Date: 20180316
  Transmission Date: 20180509
  Serious: Yes (Disabling, Other)
  Sender: FDA-Public Use
  Company Number: CH-PFIZER INC-2018076154

PATIENT
  Age: 74 Year
  Sex: Male

DRUGS (4)
  1. SORTIS [Suspect]
     Active Substance: ATORVASTATIN
     Dosage: 40 MG, 1X/DAY
     Route: 048
     Dates: start: 2010, end: 20180126
  2. ZYLORIC [Concomitant]
     Active Substance: ALLOPURINOL
  3. ASPIRIN CARDIO [Concomitant]
     Active Substance: ASPIRIN
  4. ENATEC [Concomitant]
     Active Substance: ENALAPRIL MALEATE

REACTIONS (10)
  - Immune-mediated necrotising myopathy [Recovering/Resolving]
  - Vertigo [Unknown]
  - Diplopia [Unknown]
  - Amnesia [Unknown]
  - Speech disorder [Unknown]
  - Paraesthesia [Unknown]
  - Weight decreased [Unknown]
  - Night sweats [Unknown]
  - Decreased appetite [Unknown]
  - Paresis [Unknown]

NARRATIVE: CASE EVENT DATE: 20171215
